FAERS Safety Report 6966768-5 (Version None)
Quarter: 2010Q3

REPORT INFORMATION
  Report Type: 
  Country: None (occurrence: None)
  Receive Date: 20100906
  Receipt Date: 20100827
  Transmission Date: 20110219
  Serious: Yes (Other)
  Sender: FDA-Public Use
  Company Number: US-BRISTOL-MYERS SQUIBB COMPANY-15262298

PATIENT
  Age: 50 Year
  Sex: Female

DRUGS (2)
  1. IXABEPILONE [Suspect]
     Indication: BREAST CANCER
     Dates: start: 20100517
  2. HYDROXYCHLOROQUINE [Suspect]
     Indication: BREAST CANCER
     Dates: start: 20100517

REACTIONS (1)
  - PERICARDIAL EFFUSION [None]
